FAERS Safety Report 7862650-X (Version None)
Quarter: 2011Q4

REPORT INFORMATION
  Report Type: 
  Country: None (occurrence: None)
  Receive Date: 20111027
  Receipt Date: 20101110
  Transmission Date: 20120403
  Serious: No
  Sender: FDA-Public Use
  Company Number: US-AMGEN-USASP2010004467

PATIENT
  Age: 60 Year
  Sex: Female
  Weight: 45.351 kg

DRUGS (4)
  1. HUMIRA [Suspect]
     Indication: RHEUMATOID ARTHRITIS
     Dosage: 40 MG, QWK
     Route: 058
     Dates: start: 20100401, end: 20100901
  2. ENBREL [Suspect]
     Indication: RHEUMATOID ARTHRITIS
     Dosage: UNK
     Route: 030
  3. ENBREL [Suspect]
     Indication: OFF LABEL USE
  4. HUMIRA [Suspect]
     Indication: SYSTEMIC LUPUS ERYTHEMATOSUS

REACTIONS (5)
  - DRUG DOSE OMISSION [None]
  - ALOPECIA [None]
  - RHEUMATOID ARTHRITIS [None]
  - DEVICE MALFUNCTION [None]
  - DRUG INEFFECTIVE [None]
